FAERS Safety Report 15791401 (Version 1)
Quarter: 2019Q1

REPORT INFORMATION
  Report Type: Spontaneous
  Country: US (occurrence: US)
  Receive Date: 20190104
  Receipt Date: 20190104
  Transmission Date: 20190417
  Serious: Yes (Other)
  Sender: FDA-Public Use
  Company Number: None

PATIENT
  Age: 67 Year
  Sex: Male

DRUGS (7)
  1. NABUMETONE. [Concomitant]
     Active Substance: NABUMETONE
  2. PREDNISOLONE. [Concomitant]
     Active Substance: PREDNISOLONE
  3. ATENOLOL. [Concomitant]
     Active Substance: ATENOLOL
  4. SULFASALAZINE. [Concomitant]
     Active Substance: SULFASALAZINE
  5. HUMIRA [Suspect]
     Active Substance: ADALIMUMAB
     Indication: RHEUMATOID ARTHRITIS
     Dosage: ?          OTHER FREQUENCY:EVERY 14 DAYS;?
     Route: 058
     Dates: start: 20160501, end: 20190104
  6. NIFEDICAL XL [Concomitant]
     Active Substance: NIFEDIPINE
  7. METHOTREXATE. [Concomitant]
     Active Substance: METHOTREXATE

REACTIONS (3)
  - Therapy cessation [None]
  - Platelet count decreased [None]
  - Red blood cell count decreased [None]

NARRATIVE: CASE EVENT DATE: 20190104
